FAERS Safety Report 7510963-3 (Version None)
Quarter: 2011Q2

REPORT INFORMATION
  Report Type: 
  Country: None (occurrence: None)
  Receive Date: 20110531
  Receipt Date: 20110520
  Transmission Date: 20111010
  Serious: No
  Sender: FDA-Public Use
  Company Number: US-PFIZER INC-2011110864

PATIENT
  Sex: Female
  Weight: 63.5 kg

DRUGS (2)
  1. PROGESTIN INJ [Interacting]
     Indication: HORMONE THERAPY
     Dosage: UNK
     Dates: start: 20090101
  2. ESTRING [Suspect]
     Indication: VULVOVAGINAL DRYNESS
     Dosage: UNK
     Dates: start: 20090101

REACTIONS (7)
  - DRUG INEFFECTIVE [None]
  - ARTHRALGIA [None]
  - ASTHENIA [None]
  - HOT FLUSH [None]
  - NIGHT SWEATS [None]
  - SOMNOLENCE [None]
  - INSOMNIA [None]
